FAERS Safety Report 7277637 (Version 3)
Quarter: 2018Q4

REPORT INFORMATION
  Report Type: Report from Study
  Country: JP (occurrence: JP)
  Receive Date: 20100212
  Receipt Date: 20181029
  Transmission Date: 20190205
  Serious: Yes (Hospitalization, Other)
  Sender: FDA-Public Use
  Company Number: PHHY2010JP06748

PATIENT
  Age: 69 Year
  Sex: Female

DRUGS (17)
  1. COMTAN [Suspect]
     Active Substance: ENTACAPONE
     Indication: DRUG EFFECT DECREASED
     Dosage: 700 MG, DAILY
     Route: 048
     Dates: start: 20081007, end: 20090417
  2. COMTAN [Suspect]
     Active Substance: ENTACAPONE
     Route: 048
     Dates: start: 20090624
  3. DROXIDOPA [Concomitant]
     Active Substance: DROXIDOPA
     Indication: PARKINSON^S DISEASE
     Dosage: 600 MG, UNK
     Route: 048
     Dates: start: 20070710, end: 20090427
  4. RISPERDAL [Concomitant]
     Active Substance: RISPERIDONE
     Indication: PRODUCT USED FOR UNKNOWN INDICATION
     Dosage: 2 MG, UNK
     Route: 048
     Dates: start: 20090428
  5. COMTAN [Suspect]
     Active Substance: ENTACAPONE
     Route: 048
     Dates: start: 20090418, end: 20090529
  6. LEVODOPA-CARBIDOPA [Suspect]
     Active Substance: CARBIDOPA\LEVODOPA
     Indication: PARKINSON^S DISEASE
     Dosage: 700 MG, DAILY
     Route: 048
     Dates: start: 20070109, end: 20090417
  7. CABASER [Concomitant]
     Active Substance: CABERGOLINE
     Indication: PARKINSON^S DISEASE
     Dosage: 2 MG, UNK
     Route: 048
     Dates: start: 20060807, end: 20090427
  8. COMTAN [Suspect]
     Active Substance: ENTACAPONE
     Route: 048
     Dates: start: 20090530, end: 20090623
  9. LEVODOPA-CARBIDOPA [Suspect]
     Active Substance: CARBIDOPA\LEVODOPA
     Dosage: 400 MG DAILY
     Dates: start: 20090513
  10. SELEGILINE HYDROCHLORIDE. [Suspect]
     Active Substance: SELEGILINE HYDROCHLORIDE
     Indication: PARKINSON^S DISEASE
     Dosage: 7.5 MG, DAILY
     Route: 048
     Dates: start: 20090126, end: 20090427
  11. COMTAN [Suspect]
     Active Substance: ENTACAPONE
     Route: 048
     Dates: start: 20081007, end: 20090417
  12. AROTINOLOL HYDROCHLORIDE [Concomitant]
     Active Substance: AROTINOLOL HYDROCHLORIDE
     Indication: PRODUCT USED FOR UNKNOWN INDICATION
     Dosage: 20 MG, UNK
     Route: 048
     Dates: start: 20051101, end: 20090413
  13. VESICARE [Concomitant]
     Active Substance: SOLIFENACIN SUCCINATE
     Indication: PRODUCT USED FOR UNKNOWN INDICATION
     Dosage: 5 MG, UNK
     Route: 048
     Dates: start: 20090126
  14. LEVODOPA-CARBIDOPA [Suspect]
     Active Substance: CARBIDOPA\LEVODOPA
     Dosage: 350 MG DAILY
     Route: 048
     Dates: start: 20090418, end: 20090512
  15. COMTAN [Suspect]
     Active Substance: ENTACAPONE
     Dosage: 350 MG DAILY
     Route: 048
     Dates: start: 20090418, end: 20090529
  16. COMTAN [Suspect]
     Active Substance: ENTACAPONE
     Dosage: 400 MG DAILY
     Route: 048
     Dates: start: 20090530, end: 2009
  17. RIVOTRIL [Concomitant]
     Active Substance: CLONAZEPAM
     Indication: PRODUCT USED FOR UNKNOWN INDICATION
     Dosage: 2 MG, UNK
     Route: 048
     Dates: start: 20060922, end: 20090413

REACTIONS (8)
  - Pubis fracture [Recovering/Resolving]
  - Road traffic accident [Unknown]
  - Dyskinesia [Recovered/Resolved]
  - Rib fracture [Recovering/Resolving]
  - Delusion [Recovered/Resolved]
  - Blood alkaline phosphatase increased [Unknown]
  - Delirium [Recovered/Resolved]
  - Hallucination [Recovered/Resolved]

NARRATIVE: CASE EVENT DATE: 20081201
